FAERS Safety Report 4586440-9 (Version None)
Quarter: 2005Q1

REPORT INFORMATION
  Report Type: 
  Country: None (occurrence: None)
  Receive Date: 20050218
  Receipt Date: 20050208
  Transmission Date: 20050727
  Serious: Yes (Hospitalization, Other)
  Sender: FDA-Public Use
  Company Number: US-JNJFOC-20040205675

PATIENT
  Sex: Female

DRUGS (1)
  1. REMICADE [Suspect]
     Indication: RHEUMATOID ARTHRITIS
     Dosage: ^INTRAVENOUS INFUSIONS ON APPROXIMATELY 5 TIMES^
     Route: 042

REACTIONS (3)
  - HOSPITALISATION [None]
  - SEPSIS [None]
  - SURGERY [None]
